FAERS Safety Report 5732107-0 (Version None)
Quarter: 2008Q2

REPORT INFORMATION
  Report Type: 
  Country: None (occurrence: None)
  Receive Date: 20080508
  Receipt Date: 20080508
  Transmission Date: 20081010
  Serious: Yes (Disabling)
  Sender: FDA-Public Use
  Company Number: None

PATIENT
  Age: 54 Year
  Sex: Female
  Weight: 63.5036 kg

DRUGS (5)
  1. ISOPTO HOMATROPINE 5% SOLUTION [Suspect]
     Indication: IRITIS
     Dosage: (3X DAILY, REDUCED TO 2X, 1X DAILY OPTHALMIC)
     Route: 047
     Dates: start: 20080210, end: 20080227
  2. SYNTHROID [Concomitant]
  3. PRED FORTE [Concomitant]
  4. XIBROM [Concomitant]
  5. ARTIFICIAL TEARS [Concomitant]

REACTIONS (6)
  - MIGRAINE [None]
  - PHOTOPSIA [None]
  - VISION BLURRED [None]
  - VISUAL ACUITY REDUCED [None]
  - VITREOUS DETACHMENT [None]
  - VITREOUS FLOATERS [None]
